FAERS Safety Report 22395307 (Version 2)
Quarter: 2023Q2

REPORT INFORMATION
  Report Type: Spontaneous
  Country: US (occurrence: US)
  Receive Date: 20230601
  Receipt Date: 20230614
  Transmission Date: 20230722
  Serious: Yes (Other)
  Sender: FDA-Public Use
  Company Number: US-TEVA-2023-US-2891116

PATIENT
  Age: 58 Year
  Sex: Male

DRUGS (6)
  1. HYDROCHLOROTHIAZIDE [Suspect]
     Active Substance: HYDROCHLOROTHIAZIDE
     Indication: Diuretic therapy
     Route: 065
  2. TORSEMIDE [Suspect]
     Active Substance: TORSEMIDE
     Indication: Diuretic therapy
     Route: 065
  3. FUROSEMIDE [Suspect]
     Active Substance: FUROSEMIDE
     Indication: Diuretic therapy
     Route: 065
  4. ETHACRYNIC ACID [Suspect]
     Active Substance: ETHACRYNIC ACID
     Indication: Diuretic therapy
     Route: 065
  5. BUMETANIDE [Suspect]
     Active Substance: BUMETANIDE
     Indication: Diuretic therapy
     Route: 065
  6. METOLAZONE [Suspect]
     Active Substance: METOLAZONE
     Indication: Diuretic therapy
     Route: 065

REACTIONS (6)
  - Drug hypersensitivity [Recovering/Resolving]
  - Diarrhoea [Unknown]
  - Rash maculo-papular [Recovered/Resolved]
  - Pruritus allergic [Recovered/Resolved]
  - Drug eruption [Recovered/Resolved]
  - Dyspnoea [Recovered/Resolved]
